FAERS Safety Report 20732726 (Version 1)
Quarter: 2022Q2

REPORT INFORMATION
  Report Type: Spontaneous
  Country: US (occurrence: US)
  Receive Date: 20220420
  Receipt Date: 20220420
  Transmission Date: 20220720
  Serious: No
  Sender: FDA-Public Use
  Company Number: US-BoehringerIngelheim-2022-BI-166339

PATIENT
  Age: 67 Year
  Sex: Male

DRUGS (2)
  1. OFEV [Suspect]
     Active Substance: NINTEDANIB
     Indication: Interstitial lung disease
     Dates: start: 202203, end: 202204
  2. OFEV [Suspect]
     Active Substance: NINTEDANIB
     Dates: start: 202204

REACTIONS (2)
  - Diarrhoea [Not Recovered/Not Resolved]
  - Sinusitis [Unknown]

NARRATIVE: CASE EVENT DATE: 20220401
